FAERS Safety Report 9614450 (Version 1)
Quarter: 2013Q4

REPORT INFORMATION
  Report Type: Spontaneous
  Country: US (occurrence: None)
  Receive Date: 20131009
  Receipt Date: 20131009
  Transmission Date: 20140711
  Serious: Yes (Hospitalization)
  Sender: FDA-Public Use
  Company Number: None

PATIENT
  Age: 11 Year
  Sex: Female
  Weight: 33 kg

DRUGS (15)
  1. TERIPARATIDE [Suspect]
     Route: 058
  2. TERIPARATIDE [Suspect]
     Indication: HYPOPARATHYROIDISM
     Route: 058
  3. CALCITRIOL [Concomitant]
  4. VITAMIN D [Concomitant]
  5. MAGNESIUM OXIDE [Concomitant]
  6. MONETLUKAST [Concomitant]
  7. PANCRELIPASE [Concomitant]
  8. ONDANSETRON [Concomitant]
  9. CLONIDINE [Concomitant]
  10. NIFEDIPINE [Concomitant]
  11. URSODIOL [Concomitant]
  12. HOME INSULIN PUMP [Concomitant]
  13. CEFEPIME [Concomitant]
  14. MICAFUNGIN [Concomitant]
  15. VANCOMYCIN [Concomitant]

REACTIONS (3)
  - Overdose [None]
  - Hypercalcaemia [None]
  - Hypertension [None]
